FAERS Safety Report 10146775 (Version 1)
Quarter: 2014Q2

REPORT INFORMATION
  Report Type: Spontaneous
  Country: US (occurrence: US)
  Receive Date: 20140501
  Receipt Date: 20140501
  Transmission Date: 20141212
  Serious: No
  Sender: FDA-Public Use
  Company Number: US-BAUSCH-BL-2013-002006

PATIENT
  Age: 82 Year
  Sex: Female

DRUGS (3)
  1. LOTEMAX (LOTEPREDNOL ETABONATE OPHTHALMIC SUSPENSION 0.5%) [Suspect]
     Indication: PINGUECULITIS
     Dosage: 1 DROP; TWICE A DAY; LEFT EYE
     Route: 047
     Dates: start: 20130325, end: 20130325
  2. LOTEMAX (LOTEPREDNOL ETABONATE OPHTHALMIC SUSPENSION 0.5%) [Suspect]
     Dosage: 1 DROP; FOUR TIMES A DAY; LEFT EYE
     Route: 047
     Dates: start: 20130326, end: 20130331
  3. LOTEMAX (LOTEPREDNOL ETABONATE OPHTHALMIC SUSPENSION 0.5%) [Suspect]
     Dosage: 1 DROP; TWICE A DAY; LEFT EYE
     Route: 047
     Dates: start: 20130401

REACTIONS (1)
  - Swelling face [Unknown]
